FAERS Safety Report 6137517-8 (Version None)
Quarter: 2009Q1

REPORT INFORMATION
  Report Type: 
  Country: None (occurrence: None)
  Receive Date: 20090326
  Receipt Date: 20090311
  Transmission Date: 20090719
  Serious: Yes (Other)
  Sender: FDA-Public Use
  Company Number: 8044170

PATIENT
  Age: 73 Year
  Sex: Female

DRUGS (4)
  1. KEPPRA [Suspect]
     Dosage: 250 MG 2/D IV
     Route: 042
  2. LORAZEPAM [Concomitant]
  3. DORMICUM /00036201/ [Concomitant]
  4. PHENYTOIN [Concomitant]

REACTIONS (4)
  - CEREBROVASCULAR ACCIDENT [None]
  - ELECTROCARDIOGRAM QT PROLONGED [None]
  - STATUS EPILEPTICUS [None]
  - VENTRICULAR TACHYCARDIA [None]
